FAERS Safety Report 6164511-3 (Version None)
Quarter: 2009Q2

REPORT INFORMATION
  Report Type: 
  Country: None (occurrence: None)
  Receive Date: 20090421
  Receipt Date: 20090414
  Transmission Date: 20091009
  Serious: Yes (Hospitalization)
  Sender: FDA-Public Use
  Company Number: 006133

PATIENT
  Age: 20 Month
  Sex: Male

DRUGS (3)
  1. BUSULFEX [Suspect]
     Indication: STEM CELL TRANSPLANT
     Dosage: 16 MG/KG
  2. FLUDARABINE PHOSPHATE [Suspect]
     Indication: STEM CELL TRANSPLANT
     Dosage: 180 MG/M2
  3. ANTITHYMOCYTE IMMUNOGLOBULIN  (ANTITHYMOCYTE IMMUNOGLOBULIN) [Suspect]
     Indication: STEM CELL TRANSPLANT
     Dosage: 40 MG/KG

REACTIONS (3)
  - CONVULSION [None]
  - PNEUMONIA [None]
  - SUBDURAL HAEMATOMA [None]
